FAERS Safety Report 10151433 (Version 1)
Quarter: 2014Q2

REPORT INFORMATION
  Report Type: Spontaneous
  Country: JP (occurrence: JP)
  Receive Date: 20140503
  Receipt Date: 20140503
  Transmission Date: 20141212
  Serious: Yes (Hospitalization)
  Sender: FDA-Public Use
  Company Number: PHHY2014JP052657

PATIENT
  Age: 54 Year
  Sex: Male

DRUGS (2)
  1. CICLOSPORIN [Suspect]
     Indication: POLYCHONDRITIS
     Route: 048
  2. CORTICOSTEROIDS [Concomitant]
     Indication: POLYCHONDRITIS
     Route: 048

REACTIONS (7)
  - Mycobacterial infection [Unknown]
  - Histiocytosis haematophagic [Unknown]
  - Pancytopenia [Unknown]
  - Hepatic enzyme increased [Unknown]
  - Inflammation [Unknown]
  - Lymphadenopathy [Unknown]
  - Pyrexia [Unknown]
